FAERS Safety Report 7753632-7 (Version None)
Quarter: 2011Q3

REPORT INFORMATION
  Report Type: 
  Country: None (occurrence: None)
  Receive Date: 20110915
  Receipt Date: 20110907
  Transmission Date: 20111222
  Serious: Yes (Other)
  Sender: FDA-Public Use
  Company Number: IT-GLAXOSMITHKLINE-B0746598A

PATIENT
  Age: 12 Year
  Sex: Male

DRUGS (1)
  1. CEFTAZIDIME [Suspect]
     Indication: PRODUCT USED FOR UNKNOWN INDICATION
     Route: 065

REACTIONS (5)
  - ANAL HAEMORRHAGE [None]
  - VOMITING [None]
  - DIARRHOEA [None]
  - COLITIS [None]
  - PRODUCT QUALITY ISSUE [None]
